FAERS Safety Report 14159261 (Version 3)
Quarter: 2018Q2

REPORT INFORMATION
  Report Type: Report from Study
  Country: US (occurrence: US)
  Receive Date: 20171103
  Receipt Date: 20180602
  Transmission Date: 20180711
  Serious: No
  Sender: FDA-Public Use
  Company Number: PHEH2017US035055

PATIENT
  Age: 41 Year
  Sex: Female

DRUGS (1)
  1. COSENTYX [Suspect]
     Active Substance: SECUKINUMAB
     Indication: PRODUCT USED FOR UNKNOWN INDICATION
     Dosage: 150 MG, QMO
     Route: 065

REACTIONS (8)
  - Accidental exposure to product [Unknown]
  - Incorrect dose administered by device [Unknown]
  - Inflammation [Unknown]
  - Headache [Unknown]
  - Muscle spasms [Unknown]
  - Device malfunction [Unknown]
  - Alopecia [Unknown]
  - Pain [Unknown]

NARRATIVE: CASE EVENT DATE: 20171027
